FAERS Safety Report 18754901 (Version 1)
Quarter: 2021Q1

REPORT INFORMATION
  Report Type: Spontaneous
  Country: CN (occurrence: CN)
  Receive Date: 20210119
  Receipt Date: 20210119
  Transmission Date: 20210419
  Serious: Yes (Other)
  Sender: FDA-Public Use
  Company Number: CN-TEVA-2021-CN-1870430

PATIENT
  Sex: Female

DRUGS (1)
  1. AZILECT [Suspect]
     Active Substance: RASAGILINE MESYLATE
     Dosage: 1 DOSAGE FORMS DAILY;
     Route: 048
     Dates: end: 20210114

REACTIONS (5)
  - Pain [Unknown]
  - Altered state of consciousness [Unknown]
  - Tension [Unknown]
  - Drug ineffective [Unknown]
  - Muscle tightness [Unknown]

NARRATIVE: CASE EVENT DATE: 20210115
